FAERS Safety Report 22379419 (Version 1)
Quarter: 2023Q2

REPORT INFORMATION
  Report Type: Spontaneous
  Country: CA (occurrence: CA)
  Receive Date: 20230529
  Receipt Date: 20230529
  Transmission Date: 20230722
  Serious: Yes (Other)
  Sender: FDA-Public Use
  Company Number: CA-PFIZER INC-202300200897

PATIENT
  Age: 14 Year
  Sex: Male

DRUGS (7)
  1. SOMATROPIN [Suspect]
     Active Substance: SOMATROPIN
     Indication: Growth hormone deficiency
     Dosage: 1.5 MG (GOQUICK 1.5 MG FOR 6 DAYS/WEEK)
  2. CLONAZEPAM [Concomitant]
     Active Substance: CLONAZEPAM
     Dosage: 1 DF
  3. CLONIDINE [Concomitant]
     Active Substance: CLONIDINE
     Dosage: 3 DF, DAILY (100MCG IN AM AND 200MCG PM)
  4. DEXACOM [Concomitant]
     Dosage: 1 DF
  5. FUXETINE [Concomitant]
     Dosage: 30 MG
  6. INSULIN NOS [Concomitant]
     Active Substance: INSULIN NOS
     Dosage: 1 DF
  7. VYVANSE [Concomitant]
     Active Substance: LISDEXAMFETAMINE DIMESYLATE
     Dosage: 30 MG

REACTIONS (1)
  - Lower limb fracture [Recovering/Resolving]

NARRATIVE: CASE EVENT DATE: 20230101
